APPROVED DRUG PRODUCT: LISINOPRIL
Active Ingredient: LISINOPRIL
Strength: 20MG
Dosage Form/Route: TABLET;ORAL
Application: A202554 | Product #004
Applicant: ACCORD HEALTHCARE INC
Approved: Jul 30, 2013 | RLD: No | RS: No | Type: DISCN